FAERS Safety Report 9109874 (Version 3)
Quarter: 2014Q3

REPORT INFORMATION
  Report Type: Report from Study
  Country: JP (occurrence: JP)
  Receive Date: 20130222
  Receipt Date: 20140725
  Transmission Date: 20150326
  Serious: Yes (Hospitalization)
  Sender: FDA-Public Use
  Company Number: JP-ACTELION-A-CH2012-67331

PATIENT
  Age: 78 Year
  Sex: Female

DRUGS (11)
  1. TADALAFIL [Suspect]
     Active Substance: TADALAFIL
     Indication: PULMONARY HYPERTENSION
     Dosage: 20 MG, UNK
     Route: 048
     Dates: start: 20130424, end: 20130521
  2. WARFARIN POTASSIUM [Concomitant]
     Active Substance: WARFARIN POTASSIUM
  3. FAMOTIDINE. [Concomitant]
     Active Substance: FAMOTIDINE
  4. ETIZOLAM [Concomitant]
     Active Substance: ETIZOLAM
  5. AMBROXOL HYDROCHLORIDE [Concomitant]
     Active Substance: AMBROXOL HYDROCHLORIDE
  6. TADALAFIL [Suspect]
     Active Substance: TADALAFIL
     Dosage: 20 MG, UNK
     Route: 048
     Dates: start: 20130605
  7. OXYGEN. [Concomitant]
     Active Substance: OXYGEN
  8. TRACLEER [Suspect]
     Active Substance: BOSENTAN\BOSENTAN MONOHYDRATE
     Indication: PULMONARY HYPERTENSION
     Dosage: 62.5 MG, QD
     Route: 048
     Dates: start: 20120112
  9. TRACLEER [Suspect]
     Active Substance: BOSENTAN\BOSENTAN MONOHYDRATE
     Dosage: 62.5 MG, BID
     Route: 048
     Dates: start: 20111220, end: 20120111
  10. TADALAFIL [Suspect]
     Active Substance: TADALAFIL
     Dosage: 40 MG, UNK
     Route: 048
     Dates: start: 20130522, end: 20130604
  11. BERAPROST SODIUM [Concomitant]
     Active Substance: BERAPROST SODIUM

REACTIONS (9)
  - Brain natriuretic peptide increased [Recovering/Resolving]
  - Hepatic function abnormal [Recovering/Resolving]
  - Aspartate aminotransferase increased [Recovering/Resolving]
  - Hypertension [Recovering/Resolving]
  - Concomitant disease aggravated [Recovering/Resolving]
  - Oedema [Recovered/Resolved]
  - Nausea [Recovered/Resolved]
  - Right ventricular failure [Recovering/Resolving]
  - Alanine aminotransferase increased [Recovering/Resolving]

NARRATIVE: CASE EVENT DATE: 20120105
